FAERS Safety Report 10049774 (Version 1)
Quarter: 2014Q2

REPORT INFORMATION
  Report Type: Spontaneous
  Country: GB (occurrence: GB)
  Receive Date: 20140401
  Receipt Date: 20140401
  Transmission Date: 20141212
  Serious: Yes (Hospitalization)
  Sender: FDA-Public Use
  Company Number: GB-BAYER-2014-043930

PATIENT
  Age: 74 Year
  Sex: Female

DRUGS (7)
  1. NIFEDIPINE [Suspect]
     Indication: HYPERTENSION
     Dosage: 90 MG, QD
     Route: 048
     Dates: start: 2009, end: 20120907
  2. BORTEZOMIB [Suspect]
     Indication: PLASMA CELL MYELOMA
     Dosage: 2.1 MG, QD
     Route: 042
     Dates: start: 20120807, end: 20120904
  3. BORTEZOMIB [Suspect]
     Indication: RENAL FAILURE
  4. DEXAMETHASONE [Suspect]
     Indication: PLASMA CELL MYELOMA
     Dosage: 20 MG, QD
     Route: 048
     Dates: start: 20120807
  5. DEXAMETHASONE [Suspect]
     Indication: RENAL FAILURE
  6. DOXAZOSIN [Suspect]
     Indication: HYPERTENSION
     Dosage: 4 MG, BID
     Route: 048
     Dates: start: 2009, end: 20120907
  7. PROPRANOLOL [Suspect]
     Indication: HYPERTENSION
     Dosage: 40 MG, BID
     Route: 048
     Dates: start: 2009, end: 20120907

REACTIONS (1)
  - Renal failure acute [Recovering/Resolving]
